FAERS Safety Report 5627174-9 (Version None)
Quarter: 2008Q1

REPORT INFORMATION
  Report Type: 
  Country: None (occurrence: None)
  Receive Date: 20080215
  Receipt Date: 20080206
  Transmission Date: 20080703
  Serious: Yes (Hospitalization)
  Sender: FDA-Public Use
  Company Number: FR-TEVA-166689ISR

PATIENT
  Sex: Male

DRUGS (4)
  1. TRAMADOL HCL [Suspect]
  2. GABAPENTIN [Suspect]
  3. HYDROXYZINE [Suspect]
  4. CLONAZEPAM [Suspect]

REACTIONS (6)
  - CARDIAC ARREST [None]
  - CONVULSION [None]
  - OVERDOSE [None]
  - RENAL FAILURE ACUTE [None]
  - SHOCK [None]
  - VENTRICULAR TACHYCARDIA [None]
